FAERS Safety Report 5405593-3 (Version None)
Quarter: 2007Q3

REPORT INFORMATION
  Report Type: 
  Country: None (occurrence: None)
  Receive Date: 20070806
  Receipt Date: 20070731
  Transmission Date: 20080115
  Serious: Yes (Hospitalization)
  Sender: FDA-Public Use
  Company Number: JP-SP-2007-02686

PATIENT
  Age: 75 Year
  Sex: Male

DRUGS (7)
  1. IMMUCYST [Suspect]
     Indication: BLADDER CANCER
     Route: 043
     Dates: start: 20060418, end: 20060620
  2. IMMUCYST [Suspect]
     Route: 043
     Dates: start: 20060418, end: 20060620
  3. LEVOFLOXACIN [Concomitant]
     Dates: start: 20060418, end: 20060424
  4. LEVOFLOXACIN [Concomitant]
     Dates: start: 20060516, end: 20060619
  5. MINOCYCLINE HYDROCHLORIDE [Concomitant]
     Dates: start: 20060502, end: 20060515
  6. FAROPENEM SODIUM [Concomitant]
     Dates: start: 20060620, end: 20060620
  7. CARBAZOCHROME SODIUM SULFONATE [Concomitant]
     Dates: start: 20060418, end: 20060620

REACTIONS (2)
  - EPIDIDYMITIS [None]
  - POLLAKIURIA [None]
